FAERS Safety Report 5395822-7 (Version None)
Quarter: 2007Q3

REPORT INFORMATION
  Report Type: 
  Country: None (occurrence: None)
  Receive Date: 20070724
  Receipt Date: 20070712
  Transmission Date: 20080115
  Serious: Yes (Death, Hospitalization, Disabling, Other)
  Sender: FDA-Public Use
  Company Number: US-PFIZER INC-2006150123

PATIENT
  Sex: Male
  Weight: 81.6 kg

DRUGS (2)
  1. CELEBREX [Suspect]
     Indication: PAIN IN EXTREMITY
     Route: 048
     Dates: start: 19990901, end: 20001101
  2. VIOXX [Suspect]
     Indication: TENDONITIS
     Route: 048
     Dates: start: 19990101, end: 20010101

REACTIONS (4)
  - ABASIA [None]
  - CEREBROVASCULAR ACCIDENT [None]
  - HEMIPARESIS [None]
  - RENAL FAILURE CHRONIC [None]
